FAERS Safety Report 5897354-6 (Version None)
Quarter: 2008Q3

REPORT INFORMATION
  Report Type: 
  Country: None (occurrence: None)
  Receive Date: 20080925
  Receipt Date: 20080710
  Transmission Date: 20090109
  Serious: No
  Sender: FDA-Public Use
  Company Number: A0736967A

PATIENT

DRUGS (2)
  1. EPZICOM [Suspect]
     Indication: DRUG USE FOR UNKNOWN INDICATION
     Route: 048
  2. UNKNOWN [Concomitant]

REACTIONS (1)
  - MEDICATION RESIDUE [None]
